FAERS Safety Report 17648467 (Version 1)
Quarter: 2020Q2

REPORT INFORMATION
  Report Type: Report from Study
  Country: CA (occurrence: CA)
  Receive Date: 20200409
  Receipt Date: 20200409
  Transmission Date: 20200713
  Serious: Yes (Other)
  Sender: FDA-Public Use
  Company Number: CA-TEVA-2020-CA-1220907

PATIENT
  Age: 44 Year
  Sex: Female

DRUGS (3)
  1. BIOTIN [Concomitant]
     Active Substance: BIOTIN
  2. PREGABALIN. [Concomitant]
     Active Substance: PREGABALIN
  3. COPAXONE [Suspect]
     Active Substance: GLATIRAMER ACETATE
     Indication: MULTIPLE SCLEROSIS
     Dates: start: 20200331

REACTIONS (5)
  - Nerve compression [Unknown]
  - Pelvic pain [Unknown]
  - Presyncope [Unknown]
  - Palpitations [Unknown]
  - Feeling hot [Unknown]

NARRATIVE: CASE EVENT DATE: 20200402
